FAERS Safety Report 4775016-6 (Version None)
Quarter: 2005Q3

REPORT INFORMATION
  Report Type: 
  Country: None (occurrence: None)
  Receive Date: 20050920
  Receipt Date: 20050902
  Transmission Date: 20060218
  Serious: Yes (Hospitalization)
  Sender: FDA-Public Use
  Company Number: ACO_0182_2005

PATIENT
  Age: 50 Year
  Sex: Female

DRUGS (7)
  1. TERNELIN [Suspect]
     Indication: DEAFNESS
     Dosage: 3 MG QDAY PO
     Route: 048
     Dates: start: 20050808, end: 20050814
  2. TERNELIN [Suspect]
     Indication: MUSCLE TIGHTNESS
     Dosage: 3 MG QDAY PO
     Route: 048
     Dates: start: 20050808, end: 20050814
  3. DORNER [Suspect]
     Dosage: 3 DF QDAY PO
     Route: 048
     Dates: start: 20050808, end: 20050814
  4. BETAMETHASONE SODIUM PHOSPHATE [Suspect]
     Dosage: 2 G QDAY PO
     Route: 048
     Dates: start: 20050808, end: 20050819
  5. MELEX [Suspect]
     Dosage: 2 G QDAY PO
     Route: 048
     Dates: start: 20050808, end: 20050819
  6. AMOXAN [Suspect]
     Dosage: 0.8 G QDAY PO
     Route: 048
     Dates: start: 20050808, end: 20050819
  7. CLIMAGEN [Suspect]
     Dosage: DF PO
     Route: 048
     Dates: start: 20050808, end: 20050819

REACTIONS (10)
  - ALANINE AMINOTRANSFERASE INCREASED [None]
  - ASPARTATE AMINOTRANSFERASE INCREASED [None]
  - DRUG ERUPTION [None]
  - ERYTHEMA [None]
  - FACE OEDEMA [None]
  - FEELING HOT [None]
  - GENERALISED OEDEMA [None]
  - LIVER DISORDER [None]
  - PYREXIA [None]
  - RASH PAPULAR [None]
